FAERS Safety Report 12726276 (Version 3)
Quarter: 2017Q1

REPORT INFORMATION
  Report Type: Report from Study
  Country: None (occurrence: US)
  Receive Date: 20160908
  Receipt Date: 20170119
  Transmission Date: 20170428
  Serious: Yes (Hospitalization, Other)
  Sender: FDA-Public Use
  Company Number: US-ABBVIE-16K-163-1717308-00

PATIENT
  Age: 42 Year
  Sex: Female
  Weight: 47.67 kg

DRUGS (4)
  1. HUMIRA [Suspect]
     Active Substance: ADALIMUMAB
     Indication: CROHN^S DISEASE
     Route: 058
     Dates: start: 20160325, end: 201607
  2. LOMOTIL [Concomitant]
     Active Substance: ATROPINE SULFATE\DIPHENOXYLATE HYDROCHLORIDE
     Indication: DIARRHOEA
  3. HUMIRA [Suspect]
     Active Substance: ADALIMUMAB
     Route: 058
     Dates: start: 201609
  4. PROTONIX [Concomitant]
     Active Substance: PANTOPRAZOLE SODIUM
     Indication: GASTROOESOPHAGEAL REFLUX DISEASE

REACTIONS (6)
  - Hypoaesthesia [Not Recovered/Not Resolved]
  - Helicobacter infection [Recovered/Resolved]
  - Intestinal stenosis [Recovered/Resolved]
  - Pyrexia [Unknown]
  - Intestinal obstruction [Recovered/Resolved]
  - Tooth abscess [Not Recovered/Not Resolved]

NARRATIVE: CASE EVENT DATE: 2016
